FAERS Safety Report 13213778 (Version 2)
Quarter: 2017Q1

REPORT INFORMATION
  Report Type: Spontaneous
  Country: AR (occurrence: AR)
  Receive Date: 20170210
  Receipt Date: 20170228
  Transmission Date: 20170428
  Serious: Yes (Hospitalization, Disabling, Other)
  Sender: FDA-Public Use
  Company Number: PHHY2017AR021163

PATIENT
  Age: 63 Year
  Sex: Female

DRUGS (1)
  1. SANDIMMUN [Suspect]
     Active Substance: CYCLOSPORINE
     Indication: LIVER TRANSPLANT
     Dosage: 1 DF, BID (25 MG AND 50 MG)
     Route: 065
     Dates: start: 20030525

REACTIONS (11)
  - Type 2 diabetes mellitus [Not Recovered/Not Resolved]
  - Myocardial infarction [Unknown]
  - Cough [Recovered/Resolved]
  - Deep vein thrombosis [Recovered/Resolved]
  - Seizure [Recovered/Resolved]
  - Infarction [Unknown]
  - Deep vein thrombosis [Recovered/Resolved]
  - Device related infection [Recovered/Resolved]
  - Neuropathy peripheral [Recovering/Resolving]
  - Coma [Recovered/Resolved]
  - Breast cancer [Unknown]

NARRATIVE: CASE EVENT DATE: 20030525
